FAERS Safety Report 9192116 (Version 2)
Quarter: 2013Q2

REPORT INFORMATION
  Report Type: Spontaneous
  Country: BR (occurrence: None)
  Receive Date: 20130325
  Receipt Date: 20130528
  Transmission Date: 20140414
  Serious: Yes (Hospitalization, Other)
  Sender: FDA-Public Use
  Company Number: DSU-2013-02280

PATIENT
  Age: 72 Year
  Sex: Male

DRUGS (2)
  1. OLMETECANLO [Suspect]
     Indication: PRODUCT USED FOR UNKNOWN INDICATION
     Route: 048
     Dates: end: 2013
  2. OLMETEC [Suspect]
     Indication: HYPERTENSION
     Route: 048

REACTIONS (2)
  - Ischaemia [None]
  - Cerebral ischaemia [None]
